FAERS Safety Report 4989774-9 (Version None)
Quarter: 2006Q2

REPORT INFORMATION
  Report Type: 
  Country: None (occurrence: None)
  Receive Date: 20060428
  Receipt Date: 20060419
  Transmission Date: 20061013
  Serious: Yes (Life-Threatening, Hospitalization)
  Sender: FDA-Public Use
  Company Number: 2006047882

PATIENT
  Age: 67 Year
  Sex: Female

DRUGS (9)
  1. ZYVOX [Suspect]
     Indication: RETROPERITONEAL INFECTION
     Dosage: 300 MG (300 MG), ORAL
     Route: 048
     Dates: start: 20051001, end: 20060310
  2. MARCUMAR [Suspect]
     Indication: ILL-DEFINED DISORDER
     Dosage: AS NEEDED (3 MG,), ORAL
     Route: 048
  3. DIFLUCAN [Concomitant]
  4. CIPROFLOXACIN [Concomitant]
  5. METRONIDAZOLE [Concomitant]
  6. TENORMIN [Concomitant]
  7. TOREM (TORASEMIDE) [Concomitant]
  8. NEXIUM [Concomitant]
  9. CIPROFLOXACIN [Concomitant]

REACTIONS (14)
  - COAGULATION FACTOR DECREASED [None]
  - DIARRHOEA [None]
  - DYSPNOEA [None]
  - GENERAL PHYSICAL HEALTH DETERIORATION [None]
  - HAEMATOMA INFECTION [None]
  - HAEMODIALYSIS [None]
  - INTERNATIONAL NORMALISED RATIO ABNORMAL [None]
  - LACTIC ACIDOSIS [None]
  - METABOLIC ACIDOSIS [None]
  - NEUROPATHY PERIPHERAL [None]
  - RENAL FAILURE ACUTE [None]
  - RETROPERITONEAL HAEMORRHAGE [None]
  - SEPSIS [None]
  - SUBCUTANEOUS HAEMATOMA [None]
